FAERS Safety Report 10205195 (Version 1)
Quarter: 2014Q2

REPORT INFORMATION
  Report Type: Spontaneous
  Country: CA (occurrence: CA)
  Receive Date: 20140529
  Receipt Date: 20140529
  Transmission Date: 20141212
  Serious: Yes (Life-Threatening)
  Sender: FDA-Public Use
  Company Number: CA-PFIZER INC-2014144070

PATIENT
  Sex: 0

DRUGS (4)
  1. IRINOTECAN HCL [Suspect]
     Route: 042
  2. FLUOROURACIL [Suspect]
  3. AVASTIN [Suspect]
     Route: 042
  4. FOLINIC ACID [Suspect]
     Route: 042

REACTIONS (1)
  - Myocardial infarction [Unknown]
